FAERS Safety Report 5091335-0 (Version None)
Quarter: 2006Q3

REPORT INFORMATION
  Report Type: 
  Country: None (occurrence: None)
  Receive Date: 20060829
  Receipt Date: 20060130
  Transmission Date: 20061208
  Serious: No
  Sender: FDA-Public Use
  Company Number: US-GLAXOSMITHKLINE-A0591540A

PATIENT
  Age: 43 Year
  Sex: Female

DRUGS (2)
  1. BECONASE [Suspect]
     Dosage: 2SPR PER DAY
     Route: 045
  2. ANTIBIOTIC [Concomitant]
     Route: 065

REACTIONS (4)
  - NASAL DISCOMFORT [None]
  - PHARMACEUTICAL PRODUCT COMPLAINT [None]
  - SINUSITIS [None]
  - SNEEZING [None]
